FAERS Safety Report 7591395-9 (Version None)
Quarter: 2011Q3

REPORT INFORMATION
  Report Type: 
  Country: None (occurrence: None)
  Receive Date: 20110706
  Receipt Date: 20110624
  Transmission Date: 20111222
  Serious: Yes (Hospitalization, Other)
  Sender: FDA-Public Use
  Company Number: US-AMGEN-USASP2011032421

PATIENT
  Sex: Female

DRUGS (2)
  1. XGEVA [Suspect]
     Indication: METASTASES TO BONE
     Dosage: 120 MG, Q4WK
     Dates: start: 20110221
  2. FEMARA [Concomitant]
     Dosage: UNK
     Dates: start: 20110201

REACTIONS (3)
  - FATIGUE [None]
  - DYSPNOEA [None]
  - THROMBOCYTOPENIA [None]
